FAERS Safety Report 21396879 (Version 2)
Quarter: 2022Q4

REPORT INFORMATION
  Report Type: Report from Study
  Country: US (occurrence: US)
  Receive Date: 20220930
  Receipt Date: 20221004
  Transmission Date: 20230113
  Serious: Yes (Hospitalization, Other)
  Sender: FDA-Public Use
  Company Number: US-ABBVIE-4133794

PATIENT
  Sex: Male

DRUGS (1)
  1. CREON [Suspect]
     Active Substance: PANCRELIPASE AMYLASE\PANCRELIPASE LIPASE\PANCRELIPASE PROTEASE
     Indication: Pancreatic carcinoma
     Dosage: DOSAGETIME INTERVAL: 0.33333333 DAYS: 36000 UNIT ONE CAPSULE BY MOUTH WITH MEALS
     Route: 048
     Dates: start: 202204

REACTIONS (5)
  - Hospitalisation [Unknown]
  - Splenectomy [Unknown]
  - Pancreatic disorder [Unknown]
  - Small intestinal resection [Unknown]
  - Hernia [Recovered/Resolved]

NARRATIVE: CASE EVENT DATE: 20220101
